FAERS Safety Report 5729117-6 (Version None)
Quarter: 2008Q2

REPORT INFORMATION
  Report Type: 
  Country: None (occurrence: None)
  Receive Date: 20080501
  Receipt Date: 20080424
  Transmission Date: 20081010
  Serious: Yes (Other)
  Sender: FDA-Public Use
  Company Number: 2008-02652

PATIENT
  Age: 71 Year
  Sex: Female

DRUGS (5)
  1. PROPAFENONE HYDROCHLORIDE [Suspect]
     Indication: ATRIAL FIBRILLATION
     Dosage: 150 MG, PRN, ORAL
     Route: 048
     Dates: start: 20080201
  2. ATENOLOL [Concomitant]
  3. POTASSIUM CHLORIDE [Concomitant]
  4. AMOXICILLIN TRIHYDRATE [Concomitant]
  5. ORTHO-PRETEST [Concomitant]

REACTIONS (4)
  - ANAPHYLACTIC REACTION [None]
  - OEDEMA MOUTH [None]
  - SWELLING FACE [None]
  - SWOLLEN TONGUE [None]
